FAERS Safety Report 15800005 (Version 1)
Quarter: 2019Q1

REPORT INFORMATION
  Report Type: Spontaneous
  Country: US (occurrence: US)
  Receive Date: 20190108
  Receipt Date: 20190108
  Transmission Date: 20190417
  Serious: Yes (Life-Threatening, Hospitalization, Other)
  Sender: FDA-Public Use
  Company Number: US-PFIZER INC-2019005504

PATIENT
  Age: 65 Year
  Sex: Male

DRUGS (1)
  1. THROMBIN [Suspect]
     Active Substance: THROMBIN
     Dosage: UNK
     Route: 061

REACTIONS (5)
  - Haemorrhage [Unknown]
  - Pain [Unknown]
  - Oedema [Unknown]
  - Sensory loss [Unknown]
  - Haemothorax [Unknown]
